FAERS Safety Report 6322657-0 (Version None)
Quarter: 2009Q3

REPORT INFORMATION
  Report Type: 
  Country: None (occurrence: None)
  Receive Date: 20090824
  Receipt Date: 20090218
  Transmission Date: 20100115
  Serious: No
  Sender: FDA-Public Use
  Company Number: US-ABBOTT-09P-163-0558112-00

PATIENT
  Sex: Female

DRUGS (10)
  1. NIASPAN [Suspect]
     Indication: DRUG USE FOR UNKNOWN INDICATION
     Dates: start: 20090118
  2. CALCIUM [Concomitant]
     Indication: DRUG USE FOR UNKNOWN INDICATION
  3. METFORMIN HCL [Concomitant]
     Indication: DRUG USE FOR UNKNOWN INDICATION
  4. JANUVIA [Concomitant]
     Indication: DRUG USE FOR UNKNOWN INDICATION
  5. ATENOLOL [Concomitant]
     Indication: DRUG USE FOR UNKNOWN INDICATION
  6. AMARYL [Concomitant]
     Indication: DRUG USE FOR UNKNOWN INDICATION
  7. HYZAAR [Concomitant]
     Indication: DRUG USE FOR UNKNOWN INDICATION
     Dosage: 100/25
  8. LAMICTAL [Concomitant]
     Indication: DRUG USE FOR UNKNOWN INDICATION
  9. NEXIUM [Concomitant]
     Indication: DRUG USE FOR UNKNOWN INDICATION
  10. ASPIRIN [Concomitant]
     Indication: DRUG USE FOR UNKNOWN INDICATION

REACTIONS (3)
  - BURNING SENSATION [None]
  - FLUSHING [None]
  - PRURITUS [None]
